FAERS Safety Report 8455797-0 (Version None)
Quarter: 2012Q2

REPORT INFORMATION
  Report Type: 
  Country: None (occurrence: None)
  Receive Date: 20120613
  Receipt Date: 20120604
  Transmission Date: 20120825
  Serious: Yes (Other)
  Sender: FDA-Public Use
  Company Number: 2012SP030091

PATIENT
  Age: 60 Year
  Sex: Male
  Weight: 65 kg

DRUGS (10)
  1. REBETOL [Suspect]
     Indication: HEPATITIS C
     Dosage: 400 MG;QD;PO, 200 MG;QD;PO
     Route: 048
     Dates: start: 20120411
  2. REBETOL [Suspect]
     Indication: HEPATITIS C
     Dosage: 400 MG;QD;PO, 200 MG;QD;PO
     Route: 048
     Dates: start: 20110425
  3. TELAVIC (ANTIVIRALS NOS) [Suspect]
     Indication: HEPATITIS C
     Dosage: 1500 MG;QD;PO
     Route: 048
     Dates: start: 20120411, end: 20120518
  4. FEBURIC [Concomitant]
  5. LEVOTHYROXINE SODIUM [Concomitant]
  6. FAMOTIDINE [Concomitant]
  7. ATELEC [Concomitant]
  8. BISOPROLOL FUMARATE [Concomitant]
  9. PEGINTERFERON ALFA-2B [Suspect]
     Indication: HEPATITIS C
     Dosage: 1.0 MCG/KG;QW;SC
     Route: 058
     Dates: start: 20110411
  10. ALPRAZOLAM [Concomitant]

REACTIONS (8)
  - LIP ULCERATION [None]
  - MUCOSAL EROSION [None]
  - HYPERURICAEMIA [None]
  - APHTHOUS STOMATITIS [None]
  - RASH [None]
  - ERYTHEMA [None]
  - PRURITUS [None]
  - RENAL DISORDER [None]
